FAERS Safety Report 12709825 (Version 1)
Quarter: 2016Q3

REPORT INFORMATION
  Report Type: Spontaneous
  Country: US (occurrence: US)
  Receive Date: 20160902
  Receipt Date: 20160902
  Transmission Date: 20161109
  Serious: Yes (Other)
  Sender: FDA-Public Use
  Company Number: US-NOVOPROD-508315

PATIENT
  Age: 30 Year
  Sex: Female

DRUGS (1)
  1. LEVEMIR [Suspect]
     Active Substance: INSULIN DETEMIR
     Indication: GESTATIONAL DIABETES
     Dosage: UNKNOWN
     Route: 058

REACTIONS (4)
  - Pancreatitis acute [Unknown]
  - Type 1 diabetes mellitus [Unknown]
  - Injection site hypersensitivity [Unknown]
  - Exposure during pregnancy [Recovered/Resolved]
